FAERS Safety Report 17353718 (Version 1)
Quarter: 2020Q1

REPORT INFORMATION
  Report Type: Spontaneous
  Country: FR (occurrence: FR)
  Receive Date: 20200131
  Receipt Date: 20200131
  Transmission Date: 20200409
  Serious: Yes (Life-Threatening, Hospitalization, Disabling, Other)
  Sender: FDA-Public Use
  Company Number: FR-ASTRAZENECA-2020SE14585

PATIENT
  Age: 37 Year
  Sex: Female

DRUGS (22)
  1. SULFAMETHOXAZOL, TRIMETHOPRIM [Suspect]
     Active Substance: SULFAMETHOXAZOLE\TRIMETHOPRIM
     Route: 065
     Dates: start: 20180328
  2. TRIMEBUTINE [Suspect]
     Active Substance: TRIMEBUTINE
     Route: 065
     Dates: start: 20180326
  3. DEXTROMETHORPHANE [Suspect]
     Active Substance: DEXTROMETHORPHAN
     Route: 065
     Dates: start: 20180630
  4. CARBON MEDICINALIS, SACCHAROMYCES CEREVISIAL [Suspect]
     Active Substance: ACTIVATED CHARCOAL\SACCHAROMYCES CEREVISIAE
     Route: 065
     Dates: start: 20180320
  5. ZINC. [Suspect]
     Active Substance: ZINC
     Route: 065
     Dates: start: 20180511
  6. CODEINE [Suspect]
     Active Substance: CODEINE
     Indication: COUGH
     Route: 065
     Dates: start: 20180707
  7. NALTREXON [Suspect]
     Active Substance: NALTREXONE
     Route: 065
     Dates: start: 20180320
  8. NICOTIN [Suspect]
     Active Substance: NICOTINE
     Route: 065
     Dates: start: 20180108
  9. OMEPRAZOL [Suspect]
     Active Substance: OMEPRAZOLE
     Route: 048
     Dates: start: 20180108
  10. SULBUTIAMINE [Suspect]
     Active Substance: SULBUTIAMINE
     Route: 065
     Dates: start: 20180326
  11. ALPRAZOLAM. [Suspect]
     Active Substance: ALPRAZOLAM
     Route: 065
     Dates: start: 20180320
  12. ERYTHROMYCINE [Suspect]
     Active Substance: ERYTHROMYCIN
     Route: 065
     Dates: start: 20180511
  13. ALVERINI CITRAS, SIMETICON [Suspect]
     Active Substance: ALVERINE CITRATE\DIMETHICONE
     Route: 065
     Dates: start: 20180320
  14. METHOCARBAMOL. [Suspect]
     Active Substance: METHOCARBAMOL
     Route: 065
     Dates: start: 20180412
  15. IBUPROFENE [Suspect]
     Active Substance: IBUPROFEN
     Route: 065
  16. LACTOBACILLUS  ACIDOPHILUS [Suspect]
     Active Substance: LACTOBACILLUS ACIDOPHILUS
     Route: 065
     Dates: start: 20180403
  17. PARACETAMOL [Suspect]
     Active Substance: ACETAMINOPHEN
     Route: 065
     Dates: start: 20180412
  18. PARACETAMOL [Suspect]
     Active Substance: ACETAMINOPHEN
     Route: 065
     Dates: start: 20180707
  19. METRONIDAZOL [Suspect]
     Active Substance: METRONIDAZOLE
     Route: 065
     Dates: start: 20180326
  20. TIXOCORTOL [Suspect]
     Active Substance: TIXOCORTOL PIVALATE
     Route: 065
     Dates: start: 20180511
  21. TIXOCORTOL [Suspect]
     Active Substance: TIXOCORTOL PIVALATE
     Route: 065
     Dates: start: 20180630
  22. BECLOMETHASONE [Suspect]
     Active Substance: BECLOMETHASONE
     Route: 065
     Dates: start: 20180630

REACTIONS (5)
  - Necrosis ischaemic [Recovered/Resolved with Sequelae]
  - Loss of consciousness [Recovered/Resolved]
  - Beta haemolytic streptococcal infection [Recovered/Resolved]
  - Septic shock [Recovered/Resolved with Sequelae]
  - Pneumonia streptococcal [Recovered/Resolved]
